FAERS Safety Report 25047597 (Version 3)
Quarter: 2025Q1

REPORT INFORMATION
  Report Type: Spontaneous
  Country: US (occurrence: US)
  Receive Date: 20250306
  Receipt Date: 20250320
  Transmission Date: 20250408
  Serious: No
  Sender: PFIZER
  Company Number: US-PFIZER INC-PV202500026543

PATIENT
  Age: 79 Year
  Sex: Female

DRUGS (1)
  1. IBRANCE [Suspect]
     Active Substance: PALBOCICLIB

REACTIONS (8)
  - Discomfort [Recovering/Resolving]
  - Asthenia [Recovering/Resolving]
  - Diarrhoea [Unknown]
  - Decreased appetite [Unknown]
  - Retching [Unknown]
  - Fatigue [Unknown]
  - Hot flush [Recovered/Resolved]
  - Macule [Unknown]

NARRATIVE: CASE EVENT DATE: 20250303
